FAERS Safety Report 12187798 (Version 3)
Quarter: 2016Q2

REPORT INFORMATION
  Report Type: Report from Study
  Country: US (occurrence: US)
  Receive Date: 20160317
  Receipt Date: 20160502
  Transmission Date: 20160815
  Serious: Yes (Other)
  Sender: FDA-Public Use
  Company Number: US-ACTELION-A-US2016-132757

PATIENT
  Age: 33 Year
  Sex: Female

DRUGS (6)
  1. SELEXIPAG [Suspect]
     Active Substance: SELEXIPAG
     Dosage: 400 MCG, BID
     Route: 048
     Dates: start: 20160418
  2. OPSUMIT [Suspect]
     Active Substance: MACITENTAN
     Indication: PULMONARY HYPERTENSION
     Dosage: 10 MG, QD
     Route: 048
     Dates: start: 20150527
  3. VITAMIN D [Concomitant]
     Active Substance: CHOLECALCIFEROL
  4. SELEXIPAG [Suspect]
     Active Substance: SELEXIPAG
     Indication: PULMONARY HYPERTENSION
     Dosage: 200 MCG, BID
     Route: 048
     Dates: start: 20160113
  5. SELEXIPAG [Suspect]
     Active Substance: SELEXIPAG
     Dosage: 600 MCG, BID
     Route: 048
     Dates: start: 20160417
  6. VALIUM [Concomitant]
     Active Substance: DIAZEPAM

REACTIONS (6)
  - Back pain [Unknown]
  - Haematuria [Unknown]
  - Fatigue [Unknown]
  - Myalgia [Unknown]
  - Hypersomnia [Unknown]
  - Headache [Unknown]

NARRATIVE: CASE EVENT DATE: 20160302
